FAERS Safety Report 7921555-6 (Version None)
Quarter: 2011Q4

REPORT INFORMATION
  Report Type: 
  Country: None (occurrence: None)
  Receive Date: 20111117
  Receipt Date: 20111115
  Transmission Date: 20120403
  Serious: Yes (Hospitalization)
  Sender: FDA-Public Use
  Company Number: CH-PFIZER INC-2011279397

PATIENT
  Age: 81 Year
  Sex: Female

DRUGS (8)
  1. RAMIPRIL [Concomitant]
     Dosage: UNK
  2. REMERON [Concomitant]
     Dosage: UNK
     Route: 048
  3. CALCIMAGON-D3 [Concomitant]
     Dosage: UNK
  4. FLUTICASONE PROPIONATE/SALMETEROL [Concomitant]
     Dosage: UNK
  5. SINTROM [Interacting]
     Dosage: AS NEEDED
     Route: 048
     Dates: end: 20110518
  6. ZOLOFT [Suspect]
     Dosage: 50 MG DAILY
     Route: 048
  7. SINTROM [Interacting]
     Dosage: UNK
     Dates: start: 20110101
  8. LERCANIDIPINE [Concomitant]
     Dosage: UNK

REACTIONS (3)
  - DRUG INTERACTION [None]
  - GASTROINTESTINAL HAEMORRHAGE [None]
  - HYPOCHROMIC ANAEMIA [None]
